FAERS Safety Report 7836464-0 (Version None)
Quarter: 2011Q4

REPORT INFORMATION
  Report Type: 
  Country: None (occurrence: None)
  Receive Date: 20111024
  Receipt Date: 20110721
  Transmission Date: 20120403
  Serious: No
  Sender: FDA-Public Use
  Company Number: US-BAYER-2011-064373

PATIENT
  Age: 79 Year
  Sex: Female
  Weight: 70 kg

DRUGS (2)
  1. ALEVE (CAPLET) [Suspect]
     Indication: PAIN
     Dosage: UNK
     Route: 048
     Dates: start: 20110720
  2. PAXIL [Concomitant]
     Dosage: UNK
     Dates: start: 20110720

REACTIONS (2)
  - WEIGHT INCREASED [None]
  - BLOOD PRESSURE INCREASED [None]
